FAERS Safety Report 11540351 (Version 1)
Quarter: 2015Q3

REPORT INFORMATION
  Report Type: Spontaneous
  Country: US (occurrence: US)
  Receive Date: 20150923
  Receipt Date: 20150923
  Transmission Date: 20151125
  Serious: Yes (Hospitalization)
  Sender: FDA-Public Use
  Company Number: US-BEH-2014044222

PATIENT
  Age: 48 Year
  Sex: Male
  Weight: 95 kg

DRUGS (29)
  1. ADVAIR HFA [Concomitant]
     Active Substance: FLUTICASONE PROPIONATE\SALMETEROL XINAFOATE
  2. HEPARIN [Concomitant]
     Active Substance: HEPARIN SODIUM
  3. POTASSIUM [Concomitant]
     Active Substance: POTASSIUM
  4. SOLU-MEDROL [Concomitant]
     Active Substance: METHYLPREDNISOLONE SODIUM SUCCINATE
  5. OXYGEN. [Concomitant]
     Active Substance: OXYGEN
  6. ALL OTHER THERAPEUTIC PRODUCTS [Concomitant]
     Active Substance: UNSPECIFIED INGREDIENT
  7. PRIVIGEN [Suspect]
     Active Substance: HUMAN IMMUNOGLOBULIN G
     Indication: IMMUNODEFICIENCY COMMON VARIABLE
     Dosage: 20 GM VIAL
     Route: 042
  8. RESTASIS [Concomitant]
     Active Substance: CYCLOSPORINE
  9. VENTOLIN [Concomitant]
     Active Substance: ALBUTEROL SULFATE
  10. COUMADIN [Concomitant]
     Active Substance: WARFARIN SODIUM
  11. DIPHENHYDRAMINE. [Concomitant]
     Active Substance: DIPHENHYDRAMINE
  12. CEFEPIME [Concomitant]
     Active Substance: CEFEPIME HYDROCHLORIDE
  13. VITAMIN C [Concomitant]
     Active Substance: ASCORBIC ACID
  14. PROTONIX [Concomitant]
     Active Substance: PANTOPRAZOLE SODIUM
  15. CALCIUM + D [Concomitant]
     Active Substance: CALCIUM\VITAMIN D
  16. EPIPEN [Concomitant]
     Active Substance: EPINEPHRINE
  17. BIAXIN [Concomitant]
     Active Substance: CLARITHROMYCIN
  18. ALBUTEROL. [Concomitant]
     Active Substance: ALBUTEROL
  19. MUCINEX [Concomitant]
     Active Substance: GUAIFENESIN
  20. SODIUM CHLORIDE. [Concomitant]
     Active Substance: SODIUM CHLORIDE
  21. PREDNISONE. [Concomitant]
     Active Substance: PREDNISONE
  22. CEFDINIR. [Concomitant]
     Active Substance: CEFDINIR
  23. MULTIVITAMIN [Concomitant]
     Active Substance: VITAMINS
  24. SPIRONOLACTONE. [Concomitant]
     Active Substance: SPIRONOLACTONE
  25. GINSENG [Concomitant]
     Active Substance: ASIAN GINSENG
  26. ALLEGRA [Concomitant]
     Active Substance: FEXOFENADINE HYDROCHLORIDE
  27. METAMUCIL [Concomitant]
     Active Substance: PLANTAGO SEED
  28. SPIRIVA [Concomitant]
     Active Substance: TIOTROPIUM BROMIDE MONOHYDRATE
  29. TOBRADEX [Concomitant]
     Active Substance: DEXAMETHASONE\TOBRAMYCIN

REACTIONS (1)
  - Dyspnoea [Not Recovered/Not Resolved]

NARRATIVE: CASE EVENT DATE: 20140620
